FAERS Safety Report 8202468-1 (Version None)
Quarter: 2012Q1

REPORT INFORMATION
  Report Type: 
  Country: None (occurrence: None)
  Receive Date: 20120312
  Receipt Date: 20120227
  Transmission Date: 20120608
  Serious: No
  Sender: FDA-Public Use
  Company Number: US-ABBOTT-12P-163-0909497-00

PATIENT
  Sex: Male
  Weight: 88.53 kg

DRUGS (7)
  1. LATUDA [Concomitant]
     Indication: MENTAL DISORDER
  2. SYNTHROID [Concomitant]
     Indication: HYPOTHYROIDISM
  3. DEPAKOTE [Suspect]
     Indication: AFFECTIVE DISORDER
     Dosage: AT BEDTIME
     Dates: start: 20060101
  4. DEPAKOTE [Suspect]
  5. METFORMIN HCL [Concomitant]
     Indication: DIABETES MELLITUS
  6. INSULIN [Concomitant]
     Indication: DIABETES MELLITUS
  7. MULTI-VITAMIN [Concomitant]
     Indication: VITAMIN SUPPLEMENTATION

REACTIONS (7)
  - BLOOD GLUCOSE INCREASED [None]
  - GLYCOSYLATED HAEMOGLOBIN INCREASED [None]
  - DISTURBANCE IN ATTENTION [None]
  - HEADACHE [None]
  - CHANGE IN SUSTAINED ATTENTION [None]
  - WEIGHT INCREASED [None]
  - WEIGHT DECREASED [None]
